FAERS Safety Report 7418593-9 (Version None)
Quarter: 2011Q1

REPORT INFORMATION
  Report Type: 
  Country: None (occurrence: None)
  Receive Date: 20110302
  Receipt Date: 20101102
  Transmission Date: 20110831
  Serious: No
  Sender: FDA-Public Use
  Company Number: 020190

PATIENT
  Sex: Female

DRUGS (2)
  1. CIMZIA [Suspect]
     Indication: CROHN'S DISEASE
     Dosage: 200 MG 1X/2 WEEKS SUBCUTANEOUS, 400 MG 1X/2 WEEKS SUBCUTANEOUS
     Route: 058
     Dates: start: 20091201
  2. PREDNISONE [Concomitant]

REACTIONS (4)
  - HAND FRACTURE [None]
  - CHOLELITHIASIS [None]
  - ABDOMINAL PAIN [None]
  - THERAPEUTIC RESPONSE DECREASED [None]
